FAERS Safety Report 5943706-5 (Version None)
Quarter: 2008Q4

REPORT INFORMATION
  Report Type: 
  Country: None (occurrence: None)
  Receive Date: 20081106
  Receipt Date: 20081030
  Transmission Date: 20090506
  Serious: Yes (Other)
  Sender: FDA-Public Use
  Company Number: FR-JNJFOC-20081006829

PATIENT
  Age: 76 Year
  Sex: Male

DRUGS (7)
  1. REMINYL LP [Suspect]
     Indication: DEMENTIA ALZHEIMER'S TYPE
     Route: 048
  2. FUROSEMIDE [Concomitant]
  3. PREVISCAN [Concomitant]
  4. COZAAR [Concomitant]
  5. PRAVASTATIN [Concomitant]
  6. DIGOXINE [Concomitant]
  7. PROPYLTHIOURACILE [Concomitant]

REACTIONS (2)
  - DYSPNOEA [None]
  - WEIGHT DECREASED [None]
